FAERS Safety Report 10517294 (Version 1)
Quarter: 2014Q4

REPORT INFORMATION
  Report Type: Spontaneous
  Country: IN (occurrence: IN)
  Receive Date: 20141014
  Receipt Date: 20141014
  Transmission Date: 20150528
  Serious: Yes (Other)
  Sender: FDA-Public Use
  Company Number: IN-B.I. PHARMACEUTICALS,INC./RIDGEFIELD-2014-BI-48164GD

PATIENT
  Age: 42 Year
  Sex: Male

DRUGS (3)
  1. CLONIDINE. [Suspect]
     Active Substance: CLONIDINE
     Indication: DRUG WITHDRAWAL SYNDROME
     Dosage: 0.5 MG
     Route: 065
  2. CLONAZEPAM. [Suspect]
     Active Substance: CLONAZEPAM
     Indication: DRUG WITHDRAWAL SYNDROME
     Dosage: 2.5 MG
     Route: 048
  3. PROXYVON [Suspect]
     Active Substance: ACETAMINOPHEN\PROPOXYPHENE
     Indication: DRUG WITHDRAWAL SYNDROME
     Dosage: 24 ANZ
     Route: 048

REACTIONS (3)
  - Withdrawal hypertension [Unknown]
  - Drug withdrawal syndrome [Unknown]
  - Drug dependence [Unknown]
